FAERS Safety Report 5368122-9 (Version None)
Quarter: 2007Q2

REPORT INFORMATION
  Report Type: 
  Country: None (occurrence: None)
  Receive Date: 20070622
  Receipt Date: 20070614
  Transmission Date: 20071010
  Serious: Yes (Other)
  Sender: FDA-Public Use
  Company Number: US-PFIZER INC-2007050554

PATIENT
  Sex: Male
  Weight: 117.9 kg

DRUGS (4)
  1. LIPITOR [Suspect]
     Indication: BLOOD CHOLESTEROL INCREASED
  2. GLUCOSAMINE [Concomitant]
  3. ANTIHYPERTENSIVES [Concomitant]
  4. HERBAL PREPARATION [Concomitant]

REACTIONS (1)
  - PAIN IN EXTREMITY [None]
